FAERS Safety Report 19688517 (Version 1)
Quarter: 2021Q3

REPORT INFORMATION
  Report Type: Spontaneous
  Country: US (occurrence: US)
  Receive Date: 20210811
  Receipt Date: 20210811
  Transmission Date: 20211014
  Serious: No
  Sender: FDA-Public Use
  Company Number: US-SA-2021SA256002

PATIENT
  Sex: Female

DRUGS (1)
  1. DUPIXENT [Suspect]
     Active Substance: DUPILUMAB
     Dosage: UNK
     Route: 058
     Dates: start: 20201210

REACTIONS (6)
  - Incorrect dose administered [Unknown]
  - Rash [Unknown]
  - Eczema [Unknown]
  - Discomfort [Unknown]
  - Skin irritation [Unknown]
  - Wrong technique in product usage process [Unknown]
